FAERS Safety Report 9679038 (Version 2)
Quarter: 2013Q4

REPORT INFORMATION
  Report Type: Spontaneous
  Country: US (occurrence: US)
  Receive Date: 20131108
  Receipt Date: 20131118
  Transmission Date: 20140711
  Serious: Yes (Other)
  Sender: FDA-Public Use
  Company Number: US-PFIZER INC-2013318594

PATIENT
  Age: 59 Year
  Sex: Female
  Weight: 59.41 kg

DRUGS (1)
  1. RELPAX [Suspect]
     Indication: MIGRAINE
     Dosage: 40 MG, AS NEEDED
     Route: 048

REACTIONS (3)
  - Breast cancer female [Recovered/Resolved]
  - Galactostasis [Unknown]
  - Haemorrhage [Unknown]
